FAERS Safety Report 15284744 (Version 1)
Quarter: 2018Q3

REPORT INFORMATION
  Report Type: Spontaneous
  Country: US (occurrence: US)
  Receive Date: 20180816
  Receipt Date: 20180816
  Transmission Date: 20181010
  Serious: No
  Sender: FDA-Public Use
  Company Number: US-ELI_LILLY_AND_COMPANY-US201808007733

PATIENT
  Age: 65 Year
  Sex: Male

DRUGS (4)
  1. ALIMTA [Suspect]
     Active Substance: PEMETREXED DISODIUM
     Indication: DISEASE PROGRESSION
     Dosage: UNK, UNKNOWN
     Route: 065
     Dates: start: 201508, end: 20160322
  2. ALIMTA [Suspect]
     Active Substance: PEMETREXED DISODIUM
     Indication: NON-SMALL CELL LUNG CANCER
     Dosage: UNK, UNKNOWN
     Route: 065
     Dates: start: 20160323, end: 20170104
  3. CARBOPLATIN. [Concomitant]
     Active Substance: CARBOPLATIN
     Indication: DISEASE PROGRESSION
     Dosage: UNK UNK, UNKNOWN
     Route: 065
     Dates: start: 201508, end: 20151118
  4. AVASTIN [Concomitant]
     Active Substance: BEVACIZUMAB
     Indication: DISEASE PROGRESSION
     Dosage: UNK UNK, UNKNOWN
     Route: 065
     Dates: start: 201508

REACTIONS (3)
  - Off label use [Unknown]
  - Fatigue [Not Recovered/Not Resolved]
  - Nausea [Unknown]

NARRATIVE: CASE EVENT DATE: 201508
